FAERS Safety Report 10813046 (Version 1)
Quarter: 2015Q1

REPORT INFORMATION
  Report Type: Report from Study
  Country: US (occurrence: US)
  Receive Date: 20150218
  Receipt Date: 20150218
  Transmission Date: 20150721
  Serious: No
  Sender: FDA-Public Use
  Company Number: US-ABBVIE-14K-163-1272266-00

PATIENT
  Age: 52 Year
  Sex: Male
  Weight: 127.12 kg

DRUGS (2)
  1. HUMIRA [Suspect]
     Active Substance: ADALIMUMAB
     Indication: PSORIATIC ARTHROPATHY
     Route: 058
     Dates: start: 2013
  2. HUMIRA [Suspect]
     Active Substance: ADALIMUMAB
     Indication: PSORIASIS

REACTIONS (6)
  - Visual impairment [Not Recovered/Not Resolved]
  - Vertigo [Recovered/Resolved]
  - Drug effect incomplete [Not Recovered/Not Resolved]
  - Colour blindness acquired [Not Recovered/Not Resolved]
  - Device issue [Unknown]
  - Cartilage injury [Not Recovered/Not Resolved]

NARRATIVE: CASE EVENT DATE: 2013
